FAERS Safety Report 5006071-6 (Version None)
Quarter: 2006Q1

REPORT INFORMATION
  Report Type: 
  Country: None (occurrence: None)
  Receive Date: 20060328
  Receipt Date: 20060209
  Transmission Date: 20060701
  Serious: No
  Sender: FDA-Public Use
  Company Number: 06P-163-0324486-00

PATIENT
  Age: 71 Year
  Sex: Male
  Weight: 92.9874 kg

DRUGS (4)
  1. HUMIRA [Suspect]
     Indication: RHEUMATOID ARTHRITIS
     Dosage: 40 MG, 1 IN 2 WK, SUBCUTANEOUS
     Route: 058
     Dates: start: 20040101
  2. AMLODIPINE BESYLATE [Concomitant]
  3. ASPIRIN [Concomitant]
  4. WARFARIN SODIUM [Concomitant]

REACTIONS (1)
  - HEART RATE IRREGULAR [None]
